FAERS Safety Report 7170769-4 (Version None)
Quarter: 2010Q4

REPORT INFORMATION
  Report Type: 
  Country: None (occurrence: None)
  Receive Date: 20101206
  Receipt Date: 20080520
  Transmission Date: 20110411
  Serious: Yes (Hospitalization, Disabling, Other)
  Sender: FDA-Public Use
  Company Number: APP201000267

PATIENT
  Sex: Male

DRUGS (2)
  1. HEPARIN SODIUM INJECTION [Suspect]
     Indication: POOR PERIPHERAL CIRCULATION
     Dates: start: 20070401
  2. HEPARIN SODIUM INJECTION [Suspect]
     Indication: POOR PERIPHERAL CIRCULATION
     Dates: start: 20070414

REACTIONS (5)
  - COAGULOPATHY [None]
  - DRUG INEFFECTIVE [None]
  - PAIN [None]
  - PYREXIA [None]
  - THROMBOSIS [None]
